FAERS Safety Report 10118473 (Version 3)
Quarter: 2017Q3

REPORT INFORMATION
  Report Type: Report from Study
  Country: None (occurrence: US)
  Receive Date: 20140426
  Receipt Date: 20170714
  Transmission Date: 20171127
  Serious: Yes (Other)
  Sender: FDA-Public Use
  Company Number: US-IPSEN BIOPHARMACEUTICALS, INC.-2010-1309

PATIENT
  Age: 12 Year
  Sex: Male
  Weight: 35.5 kg

DRUGS (1)
  1. INCRELEX [Suspect]
     Active Substance: MECASERMIN
     Indication: BODY HEIGHT BELOW NORMAL
     Route: 058
     Dates: start: 20070312, end: 20080122

REACTIONS (4)
  - Pruritus [None]
  - Skin reaction [None]
  - Skin induration [None]
  - Erythema [None]

NARRATIVE: CASE EVENT DATE: 20070501
